FAERS Safety Report 21826624 (Version 3)
Quarter: 2023Q1

REPORT INFORMATION
  Report Type: Spontaneous
  Country: US (occurrence: None)
  Receive Date: 20230106
  Receipt Date: 20230306
  Transmission Date: 20230417
  Serious: Yes (Other)
  Sender: FDA-Public Use
  Company Number: US-ROCHE-3257436

PATIENT
  Age: 52 Year
  Sex: Female

DRUGS (13)
  1. XOLAIR [Suspect]
     Active Substance: OMALIZUMAB
     Indication: Chronic inflammatory demyelinating polyradiculoneuropathy
     Dosage: STRENGTH: 150MG/ML
     Route: 058
     Dates: start: 201803
  2. XOLAIR [Suspect]
     Active Substance: OMALIZUMAB
  3. XOLAIR [Suspect]
     Active Substance: OMALIZUMAB
     Indication: Hypogammaglobulinaemia
     Dosage: STRENGTH: 150MG/ML
     Route: 058
     Dates: start: 201806
  4. XOLAIR [Suspect]
     Active Substance: OMALIZUMAB
  5. XOLAIR [Suspect]
     Active Substance: OMALIZUMAB
     Indication: Asthma
     Route: 058
     Dates: start: 20180502
  6. XOLAIR [Suspect]
     Active Substance: OMALIZUMAB
  7. XOLAIR [Suspect]
     Active Substance: OMALIZUMAB
     Indication: Asthma
  8. XOLAIR [Suspect]
     Active Substance: OMALIZUMAB
  9. XOLAIR [Suspect]
     Active Substance: OMALIZUMAB
     Indication: Idiopathic urticaria
  10. XOLAIR [Suspect]
     Active Substance: OMALIZUMAB
  11. HIZENTRA [Concomitant]
     Active Substance: HUMAN IMMUNOGLOBULIN G
  12. SULFASALAZINE [Concomitant]
     Active Substance: SULFASALAZINE
  13. XARELTO [Concomitant]
     Active Substance: RIVAROXABAN

REACTIONS (11)
  - Cellulitis [Unknown]
  - Thrombosis [Unknown]
  - Headache [Unknown]
  - Decreased appetite [Unknown]
  - Oedema [Unknown]
  - Peripheral swelling [Unknown]
  - Joint swelling [Unknown]
  - Arthritis [Unknown]
  - Dyspnoea [Unknown]
  - Weight increased [Unknown]
  - Upper respiratory tract infection [Unknown]

NARRATIVE: CASE EVENT DATE: 20221201
